FAERS Safety Report 23851270 (Version 5)
Quarter: 2024Q2

REPORT INFORMATION
  Report Type: Spontaneous
  Country: US (occurrence: US)
  Receive Date: 20240514
  Receipt Date: 20240615
  Transmission Date: 20240716
  Serious: Yes (Hospitalization)
  Sender: FDA-Public Use
  Company Number: US-UNITED THERAPEUTICS-UNT-2024-014230

PATIENT
  Age: 37 Year
  Sex: Female

DRUGS (6)
  1. REMODULIN [Suspect]
     Active Substance: TREPROSTINIL
     Indication: Pulmonary arterial hypertension
     Dosage: 0.100 ?G/KG, CONTINUING
     Route: 041
  2. REMODULIN [Suspect]
     Active Substance: TREPROSTINIL
     Dosage: UNK, CONTINUING
     Route: 041
  3. OPSUMIT [Concomitant]
     Active Substance: MACITENTAN
     Indication: Product used for unknown indication
     Dosage: UNK
  4. TADALAFIL [Concomitant]
     Active Substance: TADALAFIL
     Indication: Product used for unknown indication
     Dosage: UNK
  5. LASIX [Concomitant]
     Active Substance: FUROSEMIDE
     Indication: Chest pain
     Dosage: UNK
  6. LASIX [Concomitant]
     Active Substance: FUROSEMIDE
     Indication: Dyspnoea

REACTIONS (8)
  - Fatigue [Recovered/Resolved]
  - Non-cardiac chest pain [Recovered/Resolved]
  - Dyspnoea [Not Recovered/Not Resolved]
  - Feeling abnormal [Recovered/Resolved]
  - Device physical property issue [Recovered/Resolved]
  - Device failure [Recovered/Resolved]
  - Flushing [Recovered/Resolved]
  - Abdominal distension [Recovered/Resolved]

NARRATIVE: CASE EVENT DATE: 20240521
